FAERS Safety Report 5407676-0 (Version None)
Quarter: 2007Q3

REPORT INFORMATION
  Report Type: 
  Country: None (occurrence: None)
  Receive Date: 20070713
  Receipt Date: 20070524
  Transmission Date: 20080115
  Serious: No
  Sender: FDA-Public Use
  Company Number: 2007SP001954

PATIENT
  Age: 64 Year
  Sex: Female
  Weight: 90.7194 kg

DRUGS (7)
  1. LUNESTA [Suspect]
     Indication: INSOMNIA
     Dosage: 2 MG; ORAL, 2 MG; ORAL, 3 MG; ORAL
     Route: 048
     Dates: start: 20051201, end: 20051201
  2. LUNESTA [Suspect]
     Indication: INSOMNIA
     Dosage: 2 MG; ORAL, 2 MG; ORAL, 3 MG; ORAL
     Route: 048
     Dates: start: 20051201, end: 20051201
  3. LUNESTA [Suspect]
     Indication: INSOMNIA
     Dosage: 2 MG; ORAL, 2 MG; ORAL, 3 MG; ORAL
     Route: 048
     Dates: start: 20051201, end: 20051201
  4. VYTORIN [Concomitant]
  5. ESTRATEST [Concomitant]
  6. ALLEGRA [Concomitant]
  7. FLONASE [Concomitant]

REACTIONS (1)
  - DRUG TOLERANCE [None]
